FAERS Safety Report 20945043 (Version 1)
Quarter: 2022Q2

REPORT INFORMATION
  Report Type: Report from Study
  Country: US (occurrence: US)
  Receive Date: 20220610
  Receipt Date: 20220610
  Transmission Date: 20220721
  Serious: Yes (Other)
  Sender: FDA-Public Use
  Company Number: US-MYLANLABS-2022M1043635

PATIENT
  Age: 8 Year
  Sex: Female

DRUGS (3)
  1. HEPARIN [Suspect]
     Active Substance: HEPARIN SODIUM
     Indication: Anticoagulant therapy
     Dosage: UNK
  2. HEPARIN [Suspect]
     Active Substance: HEPARIN SODIUM
     Indication: Ischaemic stroke
  3. HEPARIN [Suspect]
     Active Substance: HEPARIN SODIUM
     Indication: Embolic stroke

REACTIONS (3)
  - Drug ineffective [Unknown]
  - Haemorrhagic infarction [Unknown]
  - Haemorrhagic transformation stroke [Unknown]
